FAERS Safety Report 5512921-7 (Version None)
Quarter: 2007Q4

REPORT INFORMATION
  Report Type: 
  Country: None (occurrence: None)
  Receive Date: 20071112
  Receipt Date: 20071102
  Transmission Date: 20080405
  Serious: Yes (Hospitalization)
  Sender: FDA-Public Use
  Company Number: B0494905A

PATIENT
  Age: 11 Year
  Sex: Female

DRUGS (2)
  1. LAMICTAL [Suspect]
     Indication: EPILEPSY
     Route: 048
     Dates: start: 20030101, end: 20050509
  2. ZARONDAN [Suspect]
     Indication: EPILEPSY
     Route: 048
     Dates: start: 20041101, end: 20050319

REACTIONS (5)
  - APLASTIC ANAEMIA [None]
  - MUCOSAL HAEMORRHAGE [None]
  - PANCYTOPENIA [None]
  - PETECHIAE [None]
  - SKIN HAEMORRHAGE [None]
